FAERS Safety Report 25797555 (Version 2)
Quarter: 2025Q3

REPORT INFORMATION
  Report Type: Report from Study
  Country: EU (occurrence: EU)
  Receive Date: 20250912
  Receipt Date: 20250917
  Transmission Date: 20251020
  Serious: Yes (Death, Hospitalization, Other)
  Sender: JOHNSON AND JOHNSON
  Company Number: EU-JNJFOC-20250906924

PATIENT

DRUGS (4)
  1. TECVAYLI [Suspect]
     Active Substance: TECLISTAMAB-CQYV
     Indication: Plasma cell myeloma refractory
     Route: 065
  2. TALQUETAMAB [Suspect]
     Active Substance: TALQUETAMAB
     Indication: Plasma cell myeloma refractory
     Route: 065
  3. ELRANATAMAB [Suspect]
     Active Substance: ELRANATAMAB
     Indication: Plasma cell myeloma refractory
     Route: 065
  4. TOCILIZUMAB [Concomitant]
     Active Substance: TOCILIZUMAB
     Indication: Plasma cell myeloma refractory
     Route: 065

REACTIONS (36)
  - Pneumonia pseudomonal [Fatal]
  - COVID-19 pneumonia [Fatal]
  - Pseudomonal sepsis [Fatal]
  - Pneumonia [Fatal]
  - Klebsiella sepsis [Fatal]
  - Infection [Unknown]
  - Cytokine release syndrome [Unknown]
  - Immune effector cell-associated neurotoxicity syndrome [Unknown]
  - Hypogammaglobulinaemia [Unknown]
  - Neutropenia [Unknown]
  - Lower respiratory tract infection [Unknown]
  - Oesophageal candidiasis [Unknown]
  - Osteomyelitis [Unknown]
  - Salmonellosis [Unknown]
  - Stenotrophomonas infection [Unknown]
  - Pneumococcal infection [Unknown]
  - Clostridium difficile infection [Unknown]
  - Bordetella infection [Unknown]
  - Mycobacterium avium complex infection [Unknown]
  - Enterococcal infection [Unknown]
  - Fungal infection [Unknown]
  - Cytomegalovirus infection [Unknown]
  - Upper respiratory tract infection [Unknown]
  - Bacterial infection [Unknown]
  - Viral infection [Unknown]
  - Urinary tract infection [Unknown]
  - Gastrointestinal infection [Unknown]
  - Skin infection [Unknown]
  - Ear infection [Unknown]
  - Enterobacter infection [Unknown]
  - Parvimonas micra infection [Unknown]
  - Varicella zoster virus infection [Unknown]
  - BK virus infection [Unknown]
  - Escherichia infection [Unknown]
  - Enterobacter infection [Unknown]
  - Streptococcal infection [Unknown]
